FAERS Safety Report 14873629 (Version 1)
Quarter: 2018Q2

REPORT INFORMATION
  Report Type: Spontaneous
  Country: US (occurrence: US)
  Receive Date: 20180510
  Receipt Date: 20180510
  Transmission Date: 20180711
  Serious: No
  Sender: FDA-Public Use
  Company Number: US-009507513-1805USA000317

PATIENT
  Age: 10 Year
  Sex: Female

DRUGS (2)
  1. STERILE DILUENT (WATER) [Suspect]
     Active Substance: WATER
     Indication: IMMUNISATION
     Dosage: UNK
  2. M-M-R II [Suspect]
     Active Substance: MEASLES VIRUS STRAIN ENDERS^ ATTENUATED EDMONSTON LIVE ANTIGEN\MUMPS VIRUS STRAIN B LEVEL JERYL LYNN LIVE ANTIGEN\RUBELLA VIRUS STRAIN WISTAR RA 27/3 LIVE ANTIGEN
     Indication: IMMUNISATION

REACTIONS (1)
  - Mumps [Not Recovered/Not Resolved]
